FAERS Safety Report 4363969-X (Version None)
Quarter: 2004Q2

REPORT INFORMATION
  Report Type: 
  Country: None (occurrence: None)
  Receive Date: 20040519
  Receipt Date: 20040513
  Transmission Date: 20050107
  Serious: Yes (Life-Threatening, Other)
  Sender: FDA-Public Use
  Company Number: 2004213460EG

PATIENT
  Age: 68 Year
  Sex: Male

DRUGS (3)
  1. FRAGMIN [Suspect]
     Indication: PROPHYLAXIS
     Dosage: 2500 IU, SINGLE, SUBCUTANEOUS
     Route: 058
     Dates: start: 20040512, end: 20040512
  2. CEFTAZIDIME PENTAHYDRATE [Concomitant]
  3. SULPERAZON (SULBACTAM SODIUM, CEFOPERAZONE SODIUM) [Concomitant]

REACTIONS (3)
  - HYPOTENSION [None]
  - MUSCLE CRAMP [None]
  - POST PROCEDURAL HAEMORRHAGE [None]
